FAERS Safety Report 10415800 (Version 1)
Quarter: 2014Q3

REPORT INFORMATION
  Report Type: Spontaneous
  Country: US (occurrence: US)
  Receive Date: 20140828
  Receipt Date: 20140828
  Transmission Date: 20150326
  Serious: No
  Sender: FDA-Public Use
  Company Number: US-PFIZER INC-2014237245

PATIENT
  Sex: Male

DRUGS (2)
  1. ABILIFY [Suspect]
     Active Substance: ARIPIPRAZOLE
     Indication: SCHIZOPHRENIA, PARANOID TYPE
     Dosage: 7.5 MG AT NIGHT AND 2MG IN THE MORNING
     Route: 048
     Dates: start: 201402
  2. XANAX [Suspect]
     Active Substance: ALPRAZOLAM
     Dosage: UNK
     Dates: start: 201402, end: 2014

REACTIONS (8)
  - Somnolence [Unknown]
  - Sensitisation [Unknown]
  - Confusional state [Unknown]
  - Emotional disorder [Unknown]
  - Distractibility [Unknown]
  - Feeling abnormal [Unknown]
  - Language disorder [Unknown]
  - Fatigue [Unknown]

NARRATIVE: CASE EVENT DATE: 2014
